FAERS Safety Report 7488273-2 (Version None)
Quarter: 2011Q2

REPORT INFORMATION
  Report Type: 
  Country: None (occurrence: None)
  Receive Date: 20110518
  Receipt Date: 20110513
  Transmission Date: 20111010
  Serious: Yes (Hospitalization)
  Sender: FDA-Public Use
  Company Number: AT-AMGEN-AUTCT2011022029

PATIENT
  Age: 63 Year
  Sex: Female

DRUGS (7)
  1. DIOVAN HCT [Concomitant]
     Dosage: UNK UNK, QD
     Route: 048
  2. DOLO-NEUROBION [Concomitant]
     Dosage: 20 MG, QD
     Route: 048
     Dates: start: 20100407
  3. BLINDED DENOSUMAB [Suspect]
     Indication: BONE DENSITY DECREASED
     Dates: start: 20091005
  4. PLACEBO [Suspect]
     Indication: BONE DENSITY DECREASED
     Dates: start: 20091005
  5. XEFO [Concomitant]
     Dosage: 8 MG, PRN
     Route: 048
  6. THYREX [Concomitant]
     Dosage: UNK UNK, QD
     Route: 048
  7. ASCALAN [Concomitant]
     Dosage: 8 MG, QD
     Route: 048

REACTIONS (1)
  - SINUSITIS [None]
